FAERS Safety Report 8844990 (Version 1)
Quarter: 2012Q4

REPORT INFORMATION
  Report Type: 
  Country: US (occurrence: US)
  Receive Date: 20121017
  Receipt Date: 20121017
  Transmission Date: 20130627
  Serious: Yes (Other)
  Sender: FDA-Public Use
  Company Number: US-BAYER-2012-108271

PATIENT
  Age: 34 Year
  Sex: Male
  Weight: 119 kg

DRUGS (19)
  1. TRASYLOL [Suspect]
     Indication: CORONARY ARTERY BYPASS
     Dosage: 200mL pump prime
     Dates: start: 20070412, end: 20070412
  2. TRASYLOL [Suspect]
     Indication: AORTIC ANEURYSM
     Dosage: Loading dose: 200ml/hour followed by 50/ml infusion
     Dates: start: 20070412, end: 20070412
  3. TRASYLOL [Suspect]
     Indication: AORTIC VALVE DISEASE
  4. MORPHINE [Concomitant]
     Dosage: 1 mg every 6 hours as needed
     Route: 042
  5. NORVASC [Concomitant]
  6. HEPARIN [Concomitant]
     Dosage: UNK
     Dates: start: 20070412
  7. CALCIUM CHLORIDE [Concomitant]
     Dosage: bypass
     Dates: start: 20070412
  8. SODIUM BICARBONATE [Concomitant]
     Dosage: bypass
     Dates: start: 20070412
  9. MANNITOL [Concomitant]
     Dosage: bypass
     Dates: start: 20070412
  10. LOPRESSOR [Concomitant]
     Dosage: UNK
     Route: 042
     Dates: start: 20070412
  11. PROTAMINE [Concomitant]
     Route: 042
  12. VASOPRESSIN [Concomitant]
     Dosage: UNK
     Route: 042
     Dates: start: 20070412
  13. LEVOPHED [Concomitant]
     Dosage: UNK
     Route: 042
     Dates: start: 20070412
  14. NEO-SYNEPHRINE (UNSPECIFIED FORMULATION) [Concomitant]
     Dosage: UNK
     Route: 042
     Dates: start: 20070412
  15. DOBUTAMINE [Concomitant]
     Dosage: UNK
     Route: 042
     Dates: start: 20070412
  16. SEVOFLURANE [Concomitant]
     Dosage: UNK
     Dates: start: 20070412
  17. SUFENTANIL [Concomitant]
     Dosage: UNK
     Route: 042
     Dates: start: 20070412
  18. ANCEF [Concomitant]
     Dosage: UNK
     Route: 042
     Dates: start: 20070412
  19. NITROGLYCERIN [Concomitant]
     Dosage: UNK
     Route: 042
     Dates: start: 20070412

REACTIONS (3)
  - Multi-organ failure [None]
  - Renal failure [Recovering/Resolving]
  - Respiratory failure [None]
